FAERS Safety Report 7987136-3 (Version None)
Quarter: 2011Q4

REPORT INFORMATION
  Report Type: 
  Country: None (occurrence: None)
  Receive Date: 20111216
  Receipt Date: 20110322
  Transmission Date: 20120403
  Serious: No
  Sender: FDA-Public Use
  Company Number: US-BRISTOL-MYERS SQUIBB COMPANY-15623796

PATIENT
  Age: 63 Year
  Sex: Female

DRUGS (6)
  1. SIMVASTATIN [Concomitant]
  2. LORAZEPAM [Concomitant]
  3. CYMBALTA [Concomitant]
  4. PLAVIX [Concomitant]
  5. MILK THISTLE [Concomitant]
  6. ABILIFY [Suspect]
     Indication: DEPRESSION
     Dosage: THEN INCREASED TO 5 MG

REACTIONS (2)
  - INSOMNIA [None]
  - RESTLESSNESS [None]
